FAERS Safety Report 7708830-5 (Version None)
Quarter: 2011Q3

REPORT INFORMATION
  Report Type: 
  Country: None (occurrence: None)
  Receive Date: 20110825
  Receipt Date: 20110818
  Transmission Date: 20111222
  Serious: Yes (Death, Hospitalization, Other)
  Sender: FDA-Public Use
  Company Number: JP-PFIZER INC-2007065232

PATIENT
  Age: 73 Year
  Sex: Female
  Weight: 50 kg

DRUGS (5)
  1. AZULFIDINE [Suspect]
     Indication: RHEUMATOID ARTHRITIS
     Route: 048
     Dates: start: 20070516, end: 20070629
  2. CATLEP [Concomitant]
     Dosage: UNK
     Dates: start: 20070404, end: 20070702
  3. MOBIC [Concomitant]
     Dosage: 10 MG, 1X/DAY
     Route: 048
     Dates: start: 20070404, end: 20070702
  4. MUCOSTA [Concomitant]
     Indication: GASTRITIS
     Dosage: 100 MG, 1X/DAY
     Route: 048
     Dates: start: 20070404, end: 20070702
  5. ACTONEL [Concomitant]
     Indication: OSTEOPOROSIS
     Dosage: 2.5 MG, 1X/DAY
     Route: 048
     Dates: start: 20070404, end: 20070702

REACTIONS (2)
  - MULTI-ORGAN FAILURE [None]
  - DRUG RASH WITH EOSINOPHILIA AND SYSTEMIC SYMPTOMS [None]
